FAERS Safety Report 5604514-8 (Version None)
Quarter: 2008Q1

REPORT INFORMATION
  Report Type: 
  Country: None (occurrence: None)
  Receive Date: 20080128
  Receipt Date: 20080125
  Transmission Date: 20080703
  Serious: Yes (Death, Life-Threatening, Hospitalization, Other)
  Sender: FDA-Public Use
  Company Number: JP-BRISTOL-MYERS SQUIBB COMPANY-14055156

PATIENT
  Age: 72 Year
  Sex: Male
  Weight: 57 kg

DRUGS (15)
  1. CISPLATIN [Suspect]
     Indication: PLEURAL MESOTHELIOMA MALIGNANT
     Dosage: DOSE-75 MG, FROM 04APR07-11APR07,DURATION-8 DAYS.
     Route: 042
     Dates: start: 20070205, end: 20070411
  2. ALIMTA [Suspect]
     Indication: PLEURAL MESOTHELIOMA MALIGNANT
     Route: 042
     Dates: start: 20070205, end: 20070411
  3. PANVITAN [Concomitant]
     Dates: start: 20070127, end: 20070419
  4. CYANOCOBALAMIN [Concomitant]
     Dates: start: 20070126, end: 20070310
  5. MYSLEE [Concomitant]
     Dates: end: 20070308
  6. LOXONIN [Concomitant]
     Dates: end: 20070215
  7. MEDICON [Concomitant]
     Dates: end: 20070315
  8. CYTOTEC [Concomitant]
     Dates: end: 20070419
  9. URSO 250 [Concomitant]
     Dates: end: 20070301
  10. CALONAL [Concomitant]
     Dates: end: 20070420
  11. NAPROXEN [Concomitant]
     Dates: start: 20070319, end: 20070419
  12. OXYCONTIN [Concomitant]
     Dates: start: 20070329, end: 20070419
  13. SERENACE [Concomitant]
     Dates: start: 20070329, end: 20070416
  14. DECADRON [Concomitant]
     Dates: start: 20070204, end: 20070406
  15. NASEA [Concomitant]
     Dates: start: 20070205, end: 20070407

REACTIONS (7)
  - ANAEMIA [None]
  - C-REACTIVE PROTEIN INCREASED [None]
  - HEPATIC FUNCTION ABNORMAL [None]
  - HYPOALBUMINAEMIA [None]
  - LYMPHOCYTE COUNT DECREASED [None]
  - MALIGNANT NEOPLASM PROGRESSION [None]
  - RENAL IMPAIRMENT [None]
